FAERS Safety Report 24046354 (Version 3)
Quarter: 2025Q1

REPORT INFORMATION
  Report Type: Report from Study
  Country: PR (occurrence: PR)
  Receive Date: 20240703
  Receipt Date: 20250306
  Transmission Date: 20250409
  Serious: Yes (Hospitalization, Other)
  Sender: ABBVIE
  Company Number: PR-ABBVIE-5821072

PATIENT
  Age: 53 Year
  Sex: Female
  Weight: 63.502 kg

DRUGS (3)
  1. HUMIRA [Suspect]
     Active Substance: ADALIMUMAB
     Indication: Rheumatoid arthritis
     Dosage: FORM STRENGTH: 40 MG
     Route: 058
     Dates: start: 20150901, end: 20250203
  2. HUMIRA [Suspect]
     Active Substance: ADALIMUMAB
     Dosage: FORM STRENGTH: 40 MG
     Route: 058
  3. METHOTREXATE [Concomitant]
     Active Substance: METHOTREXATE
     Indication: Product used for unknown indication

REACTIONS (15)
  - Seizure [Recovered/Resolved]
  - Seizure [Unknown]
  - Seizure [Recovered/Resolved]
  - Foot deformity [Not Recovered/Not Resolved]
  - Fall [Recovered/Resolved]
  - Nausea [Unknown]
  - Pain [Unknown]
  - Fatigue [Not Recovered/Not Resolved]
  - Malaise [Not Recovered/Not Resolved]
  - Seizure [Recovered/Resolved]
  - Anal fissure [Unknown]
  - Dizziness [Unknown]
  - Mouth haemorrhage [Recovered/Resolved]
  - Chapped lips [Unknown]
  - Memory impairment [Recovered/Resolved]

NARRATIVE: CASE EVENT DATE: 20240401
